FAERS Safety Report 21490633 (Version 1)
Quarter: 2022Q4

REPORT INFORMATION
  Report Type: Spontaneous
  Country: US (occurrence: US)
  Receive Date: 20221021
  Receipt Date: 20221021
  Transmission Date: 20230112
  Serious: Yes (Hospitalization, Other)
  Sender: FDA-Public Use
  Company Number: US-IPCA LABORATORIES LIMITED-IPC-2022-US-001753

PATIENT

DRUGS (1)
  1. ONDANSETRON [Suspect]
     Active Substance: ONDANSETRON
     Indication: Product used for unknown indication
     Dosage: 0.7 MILLIGRAM/KILOGRAM, SINGLE DOSE
     Route: 030

REACTIONS (6)
  - Bradycardia [Recovered/Resolved]
  - Electrocardiogram QT prolonged [Recovered/Resolved]
  - Penile oedema [Recovered/Resolved]
  - Injection site oedema [Recovered/Resolved]
  - Accidental exposure to product [Unknown]
  - Accidental overdose [Unknown]
